FAERS Safety Report 9379538 (Version 1)
Quarter: 2013Q3

REPORT INFORMATION
  Report Type: Spontaneous
  Country: FR (occurrence: FR)
  Receive Date: 20130702
  Receipt Date: 20130702
  Transmission Date: 20140515
  Serious: Yes (Hospitalization, Other)
  Sender: FDA-Public Use
  Company Number: FR-009507513-1306FRA013521

PATIENT
  Sex: Male

DRUGS (4)
  1. VICTRELIS [Suspect]
     Dosage: UNK
     Route: 048
     Dates: start: 201207, end: 201302
  2. COPEGUS [Suspect]
     Indication: HEPATITIS C ANTIBODY POSITIVE
     Dosage: UNK
     Route: 048
     Dates: start: 201207, end: 201302
  3. PEGASYS [Suspect]
     Dosage: UNK
     Route: 058
     Dates: start: 201207, end: 201302
  4. SEROPLEX [Suspect]
     Indication: DEPRESSION
     Dosage: UNK
     Route: 048
     Dates: start: 201302, end: 201302

REACTIONS (1)
  - Pancreatitis acute [Unknown]
